APPROVED DRUG PRODUCT: IOPAMIDOL
Active Ingredient: IOPAMIDOL
Strength: 41%
Dosage Form/Route: INJECTABLE;INJECTION
Application: A074629 | Product #001
Applicant: BAXTER HEALTHCARE CORP ANESTHESIA AND CRITICAL CARE
Approved: Nov 6, 1996 | RLD: No | RS: No | Type: DISCN